FAERS Safety Report 8801789 (Version 1)
Quarter: 2012Q4

REPORT INFORMATION
  Report Type: 
  Country: US (occurrence: US)
  Receive Date: 20120921
  Receipt Date: 20120921
  Transmission Date: 20130627
  Serious: Yes (Other)
  Sender: FDA-Public Use
  Company Number: US-ELI_LILLY_AND_COMPANY-US201209003087

PATIENT
  Age: 43 Year
  Sex: Female

DRUGS (3)
  1. CYMBALTA [Suspect]
     Indication: DEPRESSION
     Dosage: 30 mg, qd
     Dates: start: 201208
  2. CYMBALTA [Suspect]
     Dosage: 60 mg, qd
     Dates: start: 20120906
  3. CYMBALTA [Suspect]
     Dosage: 30 mg, qd
     Dates: start: 20120906

REACTIONS (7)
  - Skin exfoliation [Unknown]
  - Myalgia [Unknown]
  - Arthralgia [Unknown]
  - Temporomandibular joint syndrome [Unknown]
  - Rash pruritic [Unknown]
  - Photosensitivity reaction [Unknown]
  - Local swelling [Unknown]
